FAERS Safety Report 18660930 (Version 1)
Quarter: 2020Q4

REPORT INFORMATION
  Report Type: Other
  Country: GB (occurrence: GB)
  Receive Date: 20201224
  Receipt Date: 20201224
  Transmission Date: 20210114
  Serious: Yes (Disabling)
  Sender: FDA-Public Use
  Company Number: GB-STRIDES ARCOLAB LIMITED-2020SP015930

PATIENT
  Age: 25 Year
  Sex: Female
  Weight: 57.15 kg

DRUGS (1)
  1. HYDROCORTISONE. [Suspect]
     Active Substance: HYDROCORTISONE
     Indication: ECZEMA
     Dosage: WAS ENCOURAGED TO USE AS MUCH AS NEEDED, FOR AS LONG AS NECESSARY SO DID SO.
     Route: 061
     Dates: start: 1994, end: 2019

REACTIONS (8)
  - Erythema [Recovered/Resolved]
  - Alopecia [Recovered/Resolved]
  - Skin burning sensation [Recovered/Resolved]
  - Blindness transient [Unknown]
  - Nerve injury [Recovered/Resolved]
  - Eye swelling [Recovered/Resolved]
  - Neuralgia [Recovered/Resolved]
  - Insomnia [Recovered/Resolved]

NARRATIVE: CASE EVENT DATE: 2016
